FAERS Safety Report 4911084-6 (Version None)
Quarter: 2006Q1

REPORT INFORMATION
  Report Type: 
  Country: None (occurrence: None)
  Receive Date: 20060209
  Receipt Date: 20060127
  Transmission Date: 20060701
  Serious: Yes (Death)
  Sender: FDA-Public Use
  Company Number: 2006015297

PATIENT
  Sex: Male

DRUGS (3)
  1. VFEND [Suspect]
     Indication: ILL-DEFINED DISORDER
  2. CHEMOTHERAPY NOS (CHEMOTHERAPY NOS) [Concomitant]
  3. ALL OTHER THERAPEUTIC PRODUCTS (ALL OTHER THERAPEUTIC PRODUCTS) [Concomitant]

REACTIONS (1)
  - TOXIC EPIDERMAL NECROLYSIS [None]
